FAERS Safety Report 25287713 (Version 1)
Quarter: 2025Q2

REPORT INFORMATION
  Report Type: Spontaneous
  Country: US (occurrence: None)
  Receive Date: 20250508
  Receipt Date: 20250508
  Transmission Date: 20250717
  Serious: No
  Sender: FDA-CTU
  Company Number: None

PATIENT
  Age: 84 Year
  Sex: Female

DRUGS (11)
  1. NUCALA [Suspect]
     Active Substance: MEPOLIZUMAB
     Indication: Asthma
     Route: 058
     Dates: start: 20250507
  2. SYMBICORT [Concomitant]
     Active Substance: BUDESONIDE\FORMOTEROL FUMARATE DIHYDRATE
  3. ALENDRONATE [Concomitant]
     Active Substance: ALENDRONATE SODIUM
  4. APIXABAN [Concomitant]
     Active Substance: APIXABAN
  5. CLOBETASOL [Concomitant]
     Active Substance: CLOBETASOL
  6. FUROSEMIDE [Concomitant]
     Active Substance: FUROSEMIDE
  7. GABAPENTIN [Concomitant]
     Active Substance: GABAPENTIN
  8. IPRATROPIUM [Concomitant]
     Active Substance: IPRATROPIUM
  9. LORAZEPAM [Concomitant]
     Active Substance: LORAZEPAM
  10. METOPROLOL [Concomitant]
     Active Substance: METOPROLOL
  11. PANTOPRAZOLE [Concomitant]
     Active Substance: PANTOPRAZOLE

REACTIONS (2)
  - Rash erythematous [None]
  - Paraesthesia [None]

NARRATIVE: CASE EVENT DATE: 20250508
